FAERS Safety Report 5397783-3 (Version None)
Quarter: 2007Q3

REPORT INFORMATION
  Report Type: 
  Country: None (occurrence: None)
  Receive Date: 20070723
  Receipt Date: 20070723
  Transmission Date: 20080115
  Serious: Yes (Death)
  Sender: FDA-Public Use
  Company Number: None

PATIENT
  Age: 82 Year
  Sex: Male

DRUGS (4)
  1. IMMUNE GLOBULIN (IGIV) [Suspect]
     Dosage: 0.4 MG/KG
  2. SERTRALINE [Concomitant]
  3. GABAPENTIN [Concomitant]
  4. ALENDRONATE SODIUM [Concomitant]

REACTIONS (4)
  - EMBOLISM [None]
  - INFUSION RELATED REACTION [None]
  - RESPIRATORY ARREST [None]
  - UNRESPONSIVE TO STIMULI [None]
